FAERS Safety Report 8269731-X (Version None)
Quarter: 2012Q2

REPORT INFORMATION
  Report Type: 
  Country: None (occurrence: None)
  Receive Date: 20120405
  Receipt Date: 20120403
  Transmission Date: 20120825
  Serious: Yes (Death)
  Sender: FDA-Public Use
  Company Number: 2012-030633

PATIENT
  Age: 65 Year
  Sex: Male

DRUGS (2)
  1. PROPRANOLOL [Concomitant]
  2. ASPIRIN [Suspect]
     Indication: THROMBOSIS PROPHYLAXIS
     Dosage: 325 MG, QD, ORAL
     Route: 048

REACTIONS (1)
  - OESOPHAGEAL VARICES HAEMORRHAGE [None]
